FAERS Safety Report 8546463-1 (Version None)
Quarter: 2012Q3

REPORT INFORMATION
  Report Type: 
  Country: None (occurrence: None)
  Receive Date: 20120727
  Receipt Date: 20120111
  Transmission Date: 20120928
  Serious: No
  Sender: FDA-Public Use
  Company Number: US-ASTRAZENECA-2012SE02225

PATIENT
  Age: 41 Year
  Sex: Female
  Weight: 72.6 kg

DRUGS (5)
  1. SEROQUEL [Suspect]
     Indication: BIPOLAR DISORDER
     Route: 048
  2. LAMOTRIGINE [Concomitant]
  3. PREDNISONE [Concomitant]
  4. HYDROXYCOR [Concomitant]
  5. FLOUXETINE [Concomitant]

REACTIONS (7)
  - CONDITION AGGRAVATED [None]
  - DRUG DOSE OMISSION [None]
  - OFF LABEL USE [None]
  - PARANOIA [None]
  - MUSCULOSKELETAL STIFFNESS [None]
  - ANXIETY [None]
  - INSOMNIA [None]
